FAERS Safety Report 10173437 (Version 1)
Quarter: 2014Q2

REPORT INFORMATION
  Report Type: Spontaneous
  Country: US (occurrence: US)
  Receive Date: 20140515
  Receipt Date: 20140515
  Transmission Date: 20141212
  Serious: No
  Sender: FDA-Public Use
  Company Number: US-BAUSCH-BL-2013-004237

PATIENT
  Sex: Female

DRUGS (1)
  1. BROMDAY 0.09% [Suspect]
     Indication: PRODUCT USED FOR UNKNOWN INDICATION
     Dosage: DROP; OPHTHALMIC
     Route: 047

REACTIONS (1)
  - Foreign body sensation in eyes [Unknown]
